FAERS Safety Report 15759647 (Version 1)
Quarter: 2018Q4

REPORT INFORMATION
  Report Type: Spontaneous
  Country: FR (occurrence: FR)
  Receive Date: 20181226
  Receipt Date: 20181226
  Transmission Date: 20190205
  Serious: Yes (Hospitalization, Other)
  Sender: FDA-Public Use
  Company Number: FR-AUROBINDO-AUR-APL-2018-062399

PATIENT
  Age: 46 Year
  Sex: Female
  Weight: 58 kg

DRUGS (4)
  1. MERCALM [Suspect]
     Active Substance: CAFFEINE\DIMENHYDRINATE
     Indication: PRODUCT USED FOR UNKNOWN INDICATION
     Dosage: 15 DOSAGE FORM, 1 TOTAL
     Route: 048
     Dates: start: 20170603, end: 20170603
  2. ATENOLOL. [Suspect]
     Active Substance: ATENOLOL
     Indication: PRODUCT USED FOR UNKNOWN INDICATION
     Dosage: DOSAGE NON RENSEIGN?, 1 TOTAL
     Route: 048
     Dates: start: 20170603, end: 20170603
  3. TERCIAN                            /00759301/ [Suspect]
     Active Substance: CYAMEMAZINE
     Indication: PRODUCT USED FOR UNKNOWN INDICATION
     Dosage: 30 DOSAGE FORM, 1 TOTAL
     Route: 048
     Dates: start: 20170603, end: 20170603
  4. SERESTA [Suspect]
     Active Substance: OXAZEPAM
     Indication: PRODUCT USED FOR UNKNOWN INDICATION
     Dosage: 15 DOSAGE FORM, 1 TOTAL
     Route: 048
     Dates: start: 20170603, end: 20170603

REACTIONS (4)
  - Toxicity to various agents [Recovered/Resolved]
  - Altered state of consciousness [Recovered/Resolved]
  - Electrocardiogram QRS complex abnormal [Recovered/Resolved]
  - Electrocardiogram QT prolonged [Recovered/Resolved]

NARRATIVE: CASE EVENT DATE: 20170603
